FAERS Safety Report 15580756 (Version 1)
Quarter: 2018Q4

REPORT INFORMATION
  Report Type: Spontaneous
  Country: US (occurrence: US)
  Receive Date: 20181030
  Receipt Date: 20181030
  Transmission Date: 20190205
  Serious: No
  Sender: FDA-Public Use
  Company Number: None

PATIENT
  Age: 61 Year
  Sex: Male

DRUGS (4)
  1. OMEPRAZOLE. [Concomitant]
     Active Substance: OMEPRAZOLE
  2. ONDANSETRON [Concomitant]
     Active Substance: ONDANSETRON
  3. ENTYVIO [Suspect]
     Active Substance: VEDOLIZUMAB
     Route: 042
     Dates: start: 20180717
  4. PREDNISONE. [Concomitant]
     Active Substance: PREDNISONE

REACTIONS (1)
  - Off label use [None]

NARRATIVE: CASE EVENT DATE: 20181029
